FAERS Safety Report 6039575-8 (Version None)
Quarter: 2009Q1

REPORT INFORMATION
  Report Type: 
  Country: None (occurrence: None)
  Receive Date: 20090116
  Receipt Date: 20090113
  Transmission Date: 20090719
  Serious: Yes (Hospitalization)
  Sender: FDA-Public Use
  Company Number: US-JNJFOC-20090102697

PATIENT
  Sex: Male
  Weight: 104.33 kg

DRUGS (3)
  1. FENTANYL TRANSDERMAL SYSTEM [Suspect]
     Indication: NEOPLASM MALIGNANT
     Route: 062
  2. FENTANYL TRANSDERMAL SYSTEM [Suspect]
     Indication: NERVE INJURY
     Route: 062
  3. FENTANYL TRANSDERMAL SYSTEM [Suspect]
     Indication: PAIN
     Route: 062

REACTIONS (10)
  - ARTERIAL OCCLUSIVE DISEASE [None]
  - CARDIAC FAILURE [None]
  - CHEST PAIN [None]
  - DRUG PRESCRIBING ERROR [None]
  - HYPERTENSION [None]
  - INCORRECT DRUG ADMINISTRATION DURATION [None]
  - PAIN [None]
  - STENT REMOVAL [None]
  - SYNCOPE [None]
  - THROMBOSIS [None]
